FAERS Safety Report 10719419 (Version 1)
Quarter: 2015Q1

REPORT INFORMATION
  Report Type: Spontaneous
  Country: US (occurrence: US)
  Receive Date: 20150119
  Receipt Date: 20150119
  Transmission Date: 20150721
  Serious: No
  Sender: FDA-Public Use
  Company Number: US-UNITED THERAPEUTICS-UNT-2014-010276

PATIENT
  Age: 73 Year
  Sex: Female

DRUGS (1)
  1. ORENITRAM [Suspect]
     Active Substance: TREPROSTINIL
     Indication: PULMONARY HYPERTENSION
     Dosage: 0.125 MG, BID
     Route: 048
     Dates: start: 20141029

REACTIONS (4)
  - Dizziness [Unknown]
  - Dyspnoea [Unknown]
  - Heart rate increased [Unknown]
  - Pruritus [Unknown]

NARRATIVE: CASE EVENT DATE: 20141029
